FAERS Safety Report 17129055 (Version 1)
Quarter: 2019Q4

REPORT INFORMATION
  Report Type: Spontaneous
  Country: DE (occurrence: DE)
  Receive Date: 20191209
  Receipt Date: 20191209
  Transmission Date: 20200122
  Serious: Yes (Congenital Anomaly, Other)
  Sender: FDA-Public Use
  Company Number: DE-DRREDDYS-GER/GER/19/0116788

PATIENT
  Age: 1 Day
  Sex: Male
  Weight: 2.7 kg

DRUGS (2)
  1. LEVETIRACETAM. [Suspect]
     Active Substance: LEVETIRACETAM
     Indication: PRODUCT USED FOR UNKNOWN INDICATION
     Dosage: 3000 (MG/D (3X1000 MG)) 3 SEPARATED DOSES
     Route: 064
     Dates: start: 20180916, end: 20190613
  2. FOLSAN [Concomitant]
     Active Substance: FOLIC ACID
     Indication: PRODUCT USED FOR UNKNOWN INDICATION
     Dosage: 5 [MG/D ]
     Dates: start: 20181127, end: 20181127

REACTIONS (5)
  - Foetal exposure during pregnancy [Unknown]
  - Ventricular septal defect [Recovered/Resolved with Sequelae]
  - Atrial septal defect [Unknown]
  - Single umbilical artery [Recovered/Resolved]
  - Small for dates baby [Not Recovered/Not Resolved]

NARRATIVE: CASE EVENT DATE: 20190613
